FAERS Safety Report 6888041-6 (Version None)
Quarter: 2010Q3

REPORT INFORMATION
  Report Type: 
  Country: None (occurrence: None)
  Receive Date: 20100730
  Receipt Date: 20100724
  Transmission Date: 20110219
  Serious: Yes (Other)
  Sender: FDA-Public Use
  Company Number: B0667639A

PATIENT
  Age: 8 Year
  Sex: Female

DRUGS (1)
  1. LAMICTAL [Suspect]
     Indication: EPILEPSY
     Dosage: 92.5MG PER DAY
     Route: 048
     Dates: start: 20100629

REACTIONS (3)
  - AGGRESSION [None]
  - CRYING [None]
  - DYSPHORIA [None]
